FAERS Safety Report 7009101-5 (Version None)
Quarter: 2010Q3

REPORT INFORMATION
  Report Type: 
  Country: None (occurrence: None)
  Receive Date: 20100923
  Receipt Date: 20100910
  Transmission Date: 20110219
  Serious: No
  Sender: FDA-Public Use
  Company Number: US-B.I. PHARMACEUTICALS,INC./RIDGEFIELD-2010-BP-10303BP

PATIENT
  Age: 86 Year
  Sex: Male

DRUGS (2)
  1. FLOMAX [Suspect]
     Indication: BENIGN PROSTATIC HYPERPLASIA
     Dosage: 0.4 MG
     Route: 048
     Dates: start: 20080101, end: 20100301
  2. AVODART [Concomitant]
     Indication: BENIGN PROSTATIC HYPERPLASIA

REACTIONS (1)
  - URINARY RETENTION [None]
